FAERS Safety Report 9624643 (Version 2)
Quarter: 2013Q4

REPORT INFORMATION
  Report Type: Spontaneous
  Country: FR (occurrence: FR)
  Receive Date: 20131015
  Receipt Date: 20131015
  Transmission Date: 20140711
  Serious: Yes (Other)
  Sender: FDA-Public Use
  Company Number: FR-TEVA-363046ISR

PATIENT
  Sex: Female

DRUGS (4)
  1. OXALIPLATINE TEVA [Suspect]
     Indication: ADENOCARCINOMA OF COLON
     Dosage: 1 DOSAGE FORMS DAILY;
     Route: 042
     Dates: start: 20120619, end: 20121030
  2. 5-FLUOROURACILE WINTHROP [Concomitant]
     Indication: ADENOCARCINOMA OF COLON
     Route: 040
  3. SEROPLEX [Concomitant]
  4. VALDOXAN [Concomitant]

REACTIONS (2)
  - Paraesthesia [Recovering/Resolving]
  - Paresis [Recovering/Resolving]
